FAERS Safety Report 18869661 (Version 3)
Quarter: 2021Q1

REPORT INFORMATION
  Report Type: Report from Study
  Country: US (occurrence: US)
  Receive Date: 20210209
  Receipt Date: 20210308
  Transmission Date: 20210420
  Serious: Yes (Hospitalization, Other)
  Sender: FDA-Public Use
  Company Number: US-JNJFOC-20210142955

PATIENT
  Age: 72 Year
  Sex: Female
  Weight: 84.1 kg

DRUGS (2)
  1. SILDENAFIL CITRATE. [Concomitant]
     Active Substance: SILDENAFIL CITRATE
  2. SELEXIPAG [Suspect]
     Active Substance: SELEXIPAG
     Indication: PULMONARY ARTERIAL HYPERTENSION
     Route: 048

REACTIONS (8)
  - Peripheral swelling [Unknown]
  - Oedema [Unknown]
  - Pneumonia [Unknown]
  - Diabetes mellitus [Unknown]
  - Escherichia infection [Unknown]
  - Back pain [Unknown]
  - Hepatic neoplasm [Unknown]
  - Sepsis [Unknown]

NARRATIVE: CASE EVENT DATE: 20210125
